FAERS Safety Report 21620888 (Version 1)
Quarter: 2022Q4

REPORT INFORMATION
  Report Type: Report from Study
  Country: US (occurrence: US)
  Receive Date: 20221121
  Receipt Date: 20221121
  Transmission Date: 20230112
  Serious: Yes (Other)
  Sender: FDA-Public Use
  Company Number: US-UCBSA-2022059852

PATIENT
  Age: 59 Year
  Sex: Female
  Weight: 89 kg

DRUGS (1)
  1. CERTOLIZUMAB PEGOL [Suspect]
     Active Substance: CERTOLIZUMAB PEGOL
     Indication: Psoriatic arthropathy
     Dosage: 400 MILLIGRAM, EV 2 WEEKS(QOW)
     Dates: start: 20220909, end: 20220909

REACTIONS (8)
  - Syncope [Recovered/Resolved]
  - Dizziness [Recovered/Resolved]
  - Hypersensitivity [Recovered/Resolved]
  - Loss of consciousness [Unknown]
  - Face injury [Unknown]
  - Flushing [Unknown]
  - Nausea [Unknown]
  - Fall [Unknown]

NARRATIVE: CASE EVENT DATE: 20220909
